FAERS Safety Report 4946554-8 (Version None)
Quarter: 2006Q1

REPORT INFORMATION
  Report Type: 
  Country: None (occurrence: None)
  Receive Date: 20060317
  Receipt Date: 20060314
  Transmission Date: 20060701
  Serious: Yes (Hospitalization)
  Sender: FDA-Public Use
  Company Number: US-GLAXOSMITHKLINE-A0597546A

PATIENT
  Age: 78 Year
  Sex: Female

DRUGS (3)
  1. REQUIP [Suspect]
     Indication: PARKINSON'S DISEASE
     Dosage: 1MG THREE TIMES PER DAY
     Route: 048
  2. PREVACID [Concomitant]
  3. AMBIEN [Concomitant]

REACTIONS (6)
  - ARTHROPATHY [None]
  - BACK PAIN [None]
  - DRUG INEFFECTIVE [None]
  - DYSSTASIA [None]
  - HALLUCINATION [None]
  - TREMOR [None]
